FAERS Safety Report 18766774 (Version 1)
Quarter: 2021Q1

REPORT INFORMATION
  Report Type: Spontaneous
  Country: US (occurrence: US)
  Receive Date: 20210120
  Receipt Date: 20210120
  Transmission Date: 20210419
  Serious: Yes (Life-Threatening, Hospitalization)
  Sender: FDA-Public Use
  Company Number: None

PATIENT
  Age: 56 Year
  Sex: Male
  Weight: 146.2 kg

DRUGS (10)
  1. EMPAGLIFLOZIN [Concomitant]
     Active Substance: EMPAGLIFLOZIN
  2. TOPIRAMATE. [Concomitant]
     Active Substance: TOPIRAMATE
  3. LISINOPRIL?HCTZ [Concomitant]
     Active Substance: HYDROCHLOROTHIAZIDE\LISINOPRIL
  4. METFORMIN [Concomitant]
     Active Substance: METFORMIN HYDROCHLORIDE
  5. RYBELSUS [Suspect]
     Active Substance: SEMAGLUTIDE
     Indication: TYPE 2 DIABETES MELLITUS
  6. ATORVASTATIN [Concomitant]
     Active Substance: ATORVASTATIN
  7. SAW PALMETTO [Concomitant]
     Active Substance: HERBALS\SAW PALMETTO
  8. INSULIN GLARGINE [Concomitant]
     Active Substance: INSULIN GLARGINE
  9. AMLODIPINE [Concomitant]
     Active Substance: AMLODIPINE BESYLATE
  10. PHENTERMINE. [Concomitant]
     Active Substance: PHENTERMINE

REACTIONS (4)
  - Diarrhoea [None]
  - Dyspepsia [None]
  - Movement disorder [None]
  - Anaphylactic reaction [None]

NARRATIVE: CASE EVENT DATE: 20210115
